FAERS Safety Report 8094029-2 (Version None)
Quarter: 2012Q1

REPORT INFORMATION
  Report Type: 
  Country: None (occurrence: None)
  Receive Date: 20120131
  Receipt Date: 20120126
  Transmission Date: 20120608
  Serious: Yes (Death, Hospitalization)
  Sender: FDA-Public Use
  Company Number: PHHY2011BR097398

PATIENT
  Age: 86 Year
  Sex: Male

DRUGS (1)
  1. EXELON [Suspect]
     Indication: DEMENTIA ALZHEIMER'S TYPE
     Dosage: 9 MG/5 CM2, 1 PATCH A DAY
     Route: 062
     Dates: start: 20110101

REACTIONS (5)
  - DYSPNOEA [None]
  - CARDIAC FAILURE [None]
  - DEATH [None]
  - PLEURAL EFFUSION [None]
  - SWELLING [None]
